FAERS Safety Report 8297272-2 (Version None)
Quarter: 2012Q2

REPORT INFORMATION
  Report Type: 
  Country: None (occurrence: None)
  Receive Date: 20120419
  Receipt Date: 20120412
  Transmission Date: 20120825
  Serious: Yes (Hospitalization, Other)
  Sender: FDA-Public Use
  Company Number: BR-BAYER-2012-035971

PATIENT
  Age: 69 Year
  Sex: Female
  Weight: 60 kg

DRUGS (4)
  1. PROPRANOLOL [Concomitant]
     Indication: HYPERTENSION
     Dosage: 40 MG, QD
     Route: 048
  2. NEXAVAR [Suspect]
     Dosage: 200 MG, BID
     Dates: start: 20120409
  3. OMEPRAZOLE [Concomitant]
     Indication: VARICOSE VEIN
     Dosage: 20 MG, QD
     Route: 048
     Dates: start: 20050101
  4. NEXAVAR [Suspect]
     Indication: HEPATIC NEOPLASM MALIGNANT
     Dosage: 400 MG, BID
     Route: 048
     Dates: start: 20110801, end: 20120201

REACTIONS (5)
  - MENTAL DISORDER [None]
  - LOSS OF CONSCIOUSNESS [None]
  - PANCREATITIS [None]
  - DISSOCIATION [None]
  - SYNCOPE [None]
